FAERS Safety Report 8073741-5 (Version None)
Quarter: 2012Q1

REPORT INFORMATION
  Report Type: 
  Country: None (occurrence: None)
  Receive Date: 20120126
  Receipt Date: 20120123
  Transmission Date: 20120608
  Serious: Yes (Hospitalization)
  Sender: FDA-Public Use
  Company Number: GR-ROCHE-802837

PATIENT
  Age: 35 Year
  Sex: Male
  Weight: 78 kg

DRUGS (1)
  1. VEMURAFENIB [Suspect]
     Indication: METASTATIC MALIGNANT MELANOMA
     Route: 048
     Dates: start: 20110720, end: 20110909

REACTIONS (1)
  - DERMATITIS EXFOLIATIVE [None]
